FAERS Safety Report 7145869-5 (Version None)
Quarter: 2010Q4

REPORT INFORMATION
  Report Type: 
  Country: None (occurrence: None)
  Receive Date: 20101208
  Receipt Date: 20101202
  Transmission Date: 20110411
  Serious: Yes (Hospitalization)
  Sender: FDA-Public Use
  Company Number: B0686991A

PATIENT
  Age: 80 Year
  Sex: Female

DRUGS (7)
  1. AMOXICILLIN [Suspect]
     Route: 048
     Dates: start: 20101102, end: 20101102
  2. ALISKIREN [Concomitant]
     Dates: start: 20080101
  3. BENDROFLUMETHIAZIDE [Concomitant]
  4. SIMVASTATIN [Concomitant]
  5. TIOTROPIUM BROMIDE [Concomitant]
     Indication: CHRONIC OBSTRUCTIVE PULMONARY DISEASE
  6. BECLOMETASONE DIPROPIONATE [Concomitant]
     Indication: CHRONIC OBSTRUCTIVE PULMONARY DISEASE
  7. PLAVIX [Concomitant]
     Dates: start: 20080101

REACTIONS (2)
  - DYSPNOEA [None]
  - RASH GENERALISED [None]
